FAERS Safety Report 9738777 (Version 1)
Quarter: 2013Q4

REPORT INFORMATION
  Report Type: Spontaneous
  Country: GB (occurrence: GB)
  Receive Date: 20131209
  Receipt Date: 20131209
  Transmission Date: 20140711
  Serious: Yes (Hospitalization)
  Sender: FDA-Public Use
  Company Number: GB-ROCHE-1314902

PATIENT
  Age: 89 Year
  Sex: Female

DRUGS (8)
  1. RITUXIMAB [Suspect]
     Indication: RHEUMATOID ARTHRITIS
     Dosage: 1 TOTAL
     Route: 042
     Dates: start: 201307, end: 201307
  2. METHOTREXATE [Suspect]
     Indication: RHEUMATOID ARTHRITIS
     Route: 048
     Dates: start: 2009, end: 201307
  3. ADCAL (CALCIUM CARBONATE) [Concomitant]
  4. ALENDRONIC ACID [Concomitant]
  5. AMLODIPIN [Concomitant]
  6. LEVOTHYROXINE [Concomitant]
  7. QUININE [Concomitant]
  8. SULFASALAZINE [Concomitant]
     Route: 065
     Dates: start: 2009

REACTIONS (1)
  - Squamous cell carcinoma of the tongue [Unknown]
